FAERS Safety Report 10698503 (Version 2)
Quarter: 2016Q1

REPORT INFORMATION
  Report Type: Spontaneous
  Country: US (occurrence: US)
  Receive Date: 20150108
  Receipt Date: 20160225
  Transmission Date: 20160525
  Serious: Yes (Other)
  Sender: FDA-Public Use
  Company Number: US-SA-2014SA180595

PATIENT
  Age: 82 Year
  Sex: Female

DRUGS (1)
  1. RENVELA [Suspect]
     Active Substance: SEVELAMER CARBONATE
     Indication: CHRONIC KIDNEY DISEASE
     Route: 048
     Dates: start: 2008

REACTIONS (6)
  - Foot fracture [Unknown]
  - Dysgraphia [Not Recovered/Not Resolved]
  - Mass [Unknown]
  - Walking aid user [Unknown]
  - Fall [Unknown]
  - Hand fracture [Unknown]

NARRATIVE: CASE EVENT DATE: 2014
